FAERS Safety Report 11754224 (Version 1)
Quarter: 2015Q4

REPORT INFORMATION
  Report Type: Spontaneous
  Country: US (occurrence: US)
  Receive Date: 20151119
  Receipt Date: 20151119
  Transmission Date: 20160304
  Serious: No
  Sender: FDA-Public Use
  Company Number: US-MYLANLABS-2015M1007114

PATIENT
  Age: 73 Year
  Sex: Female
  Weight: 71.2 kg

DRUGS (5)
  1. NADOLOL TABLETS, USP [Suspect]
     Active Substance: NADOLOL
     Indication: HEART RATE INCREASED
     Dosage: 20 MG, QD
     Route: 048
     Dates: start: 20150220, end: 20150223
  2. NADOLOL TABLETS, USP [Suspect]
     Active Substance: NADOLOL
     Dosage: 20 MG, HS
     Dates: start: 20150226, end: 20150226
  3. NADOLOL TABLETS, USP [Suspect]
     Active Substance: NADOLOL
     Indication: BLOOD PRESSURE MEASUREMENT
     Dosage: 20 MG, HS
     Route: 048
     Dates: start: 2011, end: 20150220
  4. NADOLOL TABLETS, USP [Suspect]
     Active Substance: NADOLOL
     Dosage: UNK
     Dates: start: 2015
  5. NORVASC [Concomitant]
     Active Substance: AMLODIPINE BESYLATE
     Indication: BLOOD PRESSURE MEASUREMENT
     Dosage: 10 MG, AM

REACTIONS (5)
  - Syncope [Recovered/Resolved]
  - Hypoaesthesia [Recovered/Resolved]
  - Dizziness [Recovered/Resolved]
  - Paraesthesia [Recovered/Resolved]
  - Asthenia [Recovered/Resolved]

NARRATIVE: CASE EVENT DATE: 20150220
